FAERS Safety Report 10934088 (Version 2)
Quarter: 2015Q2

REPORT INFORMATION
  Report Type: Spontaneous
  Country: GB (occurrence: GB)
  Receive Date: 20150320
  Receipt Date: 20150413
  Transmission Date: 20150821
  Serious: Yes (Other)
  Sender: FDA-Public Use
  Company Number: GB-TEVA-547873ACC

PATIENT
  Age: 33 Year
  Sex: Female
  Weight: 107.95 kg

DRUGS (3)
  1. DULOXETINE [Concomitant]
     Active Substance: DULOXETINE
  2. CERAZETTE [Concomitant]
     Active Substance: DESOGESTREL
  3. GABAPENTIN. [Suspect]
     Active Substance: GABAPENTIN
     Indication: NERVE INJURY
     Route: 048
     Dates: start: 20150227

REACTIONS (8)
  - Disorientation [Not Recovered/Not Resolved]
  - Dizziness [Not Recovered/Not Resolved]
  - Vertigo [Unknown]
  - Feeling abnormal [Not Recovered/Not Resolved]
  - Malaise [Unknown]
  - Confusional state [Not Recovered/Not Resolved]
  - Feeling drunk [Not Recovered/Not Resolved]
  - Impaired driving ability [Unknown]

NARRATIVE: CASE EVENT DATE: 20150228
